FAERS Safety Report 4313163-3 (Version None)
Quarter: 2004Q1

REPORT INFORMATION
  Report Type: 
  Country: None (occurrence: None)
  Receive Date: 20040304
  Receipt Date: 20040212
  Transmission Date: 20041129
  Serious: Yes (Hospitalization)
  Sender: FDA-Public Use
  Company Number: JP_040202647

PATIENT
  Sex: Female

DRUGS (7)
  1. ONCOVIN [Suspect]
     Dates: start: 20030201, end: 20030501
  2. CYCLOPHOSPHAMIDE [Concomitant]
  3. MERCAPTOPURINE [Concomitant]
  4. CYTARABINE [Concomitant]
  5. PREDNISOLONE [Concomitant]
  6. DAUNORUBICIN HCL [Concomitant]
  7. ELSPAR [Concomitant]

REACTIONS (5)
  - BONE MARROW DEPRESSION [None]
  - CAESAREAN SECTION [None]
  - MATERNAL DRUGS AFFECTING FOETUS [None]
  - NEONATAL DISORDER [None]
  - PREMATURE BABY [None]
